FAERS Safety Report 22148923 (Version 2)
Quarter: 2023Q2

REPORT INFORMATION
  Report Type: Spontaneous
  Country: US (occurrence: US)
  Receive Date: 20230328
  Receipt Date: 20230420
  Transmission Date: 20230721
  Serious: No
  Sender: FDA-Public Use
  Company Number: US-PFIZER INC-202300130658

PATIENT
  Age: 67 Year
  Sex: Male
  Weight: 74.84 kg

DRUGS (8)
  1. PAXLOVID [Suspect]
     Active Substance: NIRMATRELVIR\RITONAVIR
     Indication: COVID-19 treatment
     Dosage: [PF-07321332 150 MG]/[RITONAVIR 100 MG]; 2X/DAY
     Route: 048
     Dates: start: 20230319, end: 20230323
  2. SIMVASTATIN [Concomitant]
     Active Substance: SIMVASTATIN
     Dosage: 10 MG
     Dates: end: 202303
  3. SIMVASTATIN [Concomitant]
     Active Substance: SIMVASTATIN
     Dosage: 10 MG
     Dates: start: 202303
  4. BIKTARVY [Concomitant]
     Active Substance: BICTEGRAVIR SODIUM\EMTRICITABINE\TENOFOVIR ALAFENAMIDE FUMARATE
     Indication: HIV infection
     Dosage: UNK
     Route: 048
     Dates: start: 2019
  5. EDURANT [Concomitant]
     Active Substance: RILPIVIRINE HYDROCHLORIDE
     Indication: HIV infection
     Dosage: UNK
     Route: 048
     Dates: start: 2019
  6. FINASTERIDE [Concomitant]
     Active Substance: FINASTERIDE
     Indication: Prostatic disorder
     Dosage: UNK
     Route: 048
     Dates: start: 2020
  7. OLMESARTAN [Concomitant]
     Active Substance: OLMESARTAN
     Indication: Blood pressure abnormal
     Dosage: UNK
     Route: 048
     Dates: start: 2018
  8. ALLOPURINOL [Concomitant]
     Active Substance: ALLOPURINOL
     Dosage: UNK

REACTIONS (2)
  - Therapeutic product effect incomplete [Recovered/Resolved]
  - Dysgeusia [Unknown]

NARRATIVE: CASE EVENT DATE: 20230301
